FAERS Safety Report 9354550 (Version 2)
Quarter: 2013Q2

REPORT INFORMATION
  Report Type: Spontaneous
  Country: US (occurrence: US)
  Receive Date: 20130618
  Receipt Date: 20130627
  Transmission Date: 20140414
  Serious: No
  Sender: FDA-Public Use
  Company Number: US-PFIZER INC-2013182611

PATIENT
  Age: 48 Year
  Sex: Female
  Weight: 42.18 kg

DRUGS (6)
  1. LYRICA [Suspect]
     Indication: FIBROMYALGIA
     Dosage: 50 MG, 1X/DAY
     Route: 048
  2. PROTONIX [Suspect]
     Indication: GASTROOESOPHAGEAL REFLUX DISEASE
     Dosage: 40 MG, 1X/DAY
     Route: 048
  3. PROTONIX [Suspect]
     Indication: PEPTIC ULCER
  4. HYDROCODONE [Concomitant]
     Indication: SCOLIOSIS
     Dosage: UNK, AS NEEDED
  5. CLONAZEPAM [Concomitant]
     Indication: PANIC ATTACK
     Dosage: UNK
  6. TOPAMAX [Concomitant]
     Indication: MIGRAINE
     Dosage: UNK

REACTIONS (2)
  - Headache [Unknown]
  - Migraine [Unknown]
